FAERS Safety Report 16290096 (Version 1)
Quarter: 2019Q2

REPORT INFORMATION
  Report Type: Spontaneous
  Country: US (occurrence: US)
  Receive Date: 20190404
  Receipt Date: 20190404
  Transmission Date: 20190711
  Serious: No
  Sender: FDA-Public Use
  Company Number: None

PATIENT

DRUGS (3)
  1. LOSARTAN POTASSIUM 50MG [Suspect]
     Active Substance: LOSARTAN POTASSIUM
  2. LOSARTAN POTASSIUM 25MG [Suspect]
     Active Substance: LOSARTAN POTASSIUM
  3. LOSARTAN POTASSIUM 100 MG [Suspect]
     Active Substance: LOSARTAN POTASSIUM

REACTIONS (4)
  - Diplopia [None]
  - Dizziness [None]
  - Vision blurred [None]
  - Abdominal distension [None]
